FAERS Safety Report 9299377 (Version 2)
Quarter: 2013Q4

REPORT INFORMATION
  Report Type: Spontaneous
  Country: US (occurrence: US)
  Receive Date: 20130520
  Receipt Date: 20131106
  Transmission Date: 20140711
  Serious: Yes (Hospitalization)
  Sender: FDA-Public Use
  Company Number: US-B.I. PHARMACEUTICALS,INC./RIDGEFIELD-2013-BI-13775BP

PATIENT
  Age: 94 Year
  Sex: Male
  Weight: 62.6 kg

DRUGS (5)
  1. PRADAXA [Suspect]
     Indication: ANTICOAGULANT THERAPY
     Dosage: 150 MG
     Dates: start: 20111207, end: 20120703
  2. NORVASC [Concomitant]
     Dosage: 5 MG
  3. FUROSEMIDE [Concomitant]
     Dosage: 40 MG
  4. POTASSIUM CHLORIDE [Concomitant]
     Dosage: 10 MEQ
  5. ATENOLOL [Concomitant]
     Dosage: 100 MG

REACTIONS (6)
  - Gastrointestinal haemorrhage [Recovered/Resolved]
  - Anaemia [Unknown]
  - Coagulopathy [Unknown]
  - Presyncope [Unknown]
  - Fall [Unknown]
  - Excoriation [Unknown]
